FAERS Safety Report 8791280 (Version 3)
Quarter: 2013Q1

REPORT INFORMATION
  Report Type: Spontaneous
  Country: DE (occurrence: None)
  Receive Date: 20120911
  Receipt Date: 20121226
  Transmission Date: 20140127
  Serious: Yes (Hospitalization)
  Sender: FDA-Public Use
  Company Number: 2012MPI00393

PATIENT
  Age: 16 Year
  Sex: Female
  Weight: 83.6 kg

DRUGS (1)
  1. BRENTUXIMAB VEDOTIN [Suspect]
     Indication: HODGKIN^S DISEASE
     Route: 042
     Dates: start: 20120813, end: 20120813

REACTIONS (8)
  - Febrile neutropenia [None]
  - Activities of daily living impaired [None]
  - Fatigue [None]
  - Haemoglobin decreased [None]
  - Platelet count decreased [None]
  - White blood cell count decreased [None]
  - Pain in extremity [None]
  - Overdose [None]
